FAERS Safety Report 13643339 (Version 3)
Quarter: 2017Q3

REPORT INFORMATION
  Report Type: Report from Study
  Country: US (occurrence: US)
  Receive Date: 20170612
  Receipt Date: 20170724
  Transmission Date: 20171127
  Serious: Yes (Hospitalization, Other)
  Sender: FDA-Public Use
  Company Number: US-GILEAD-2017-0275238

PATIENT
  Age: 34 Year
  Sex: Male
  Weight: 58.6 kg

DRUGS (21)
  1. PREDNISONE. [Concomitant]
     Active Substance: PREDNISONE
     Dosage: UNK
     Dates: start: 20151111
  2. KADIAN [Concomitant]
     Active Substance: MORPHINE SULFATE
     Dosage: 50 MG, BID
     Dates: start: 201106
  3. FLUCONAZOLE. [Concomitant]
     Active Substance: FLUCONAZOLE
     Dosage: 200 MG, QD
     Dates: start: 20161019
  4. ATENOLOL. [Concomitant]
     Active Substance: ATENOLOL
     Dosage: 25 MG, QD
     Dates: start: 20141218
  5. ONDANSETRON [Concomitant]
     Active Substance: ONDANSETRON
     Indication: NAUSEA
     Dosage: 4 MG, EVERY 6 HOURS AS NEEDED
     Dates: start: 20170301
  6. PROMETHAZINE [Concomitant]
     Active Substance: PROMETHAZINE\PROMETHAZINE HYDROCHLORIDE
     Indication: NAUSEA
     Dosage: 25 MG, EVERY 6 HOURS AS NEEDED
     Dates: start: 20121219
  7. AMBIEN [Concomitant]
     Active Substance: ZOLPIDEM TARTRATE
     Dosage: 10 MG, AT BEDTIME
     Dates: start: 20090917
  8. MEROPENEM. [Concomitant]
     Active Substance: MEROPENEM
     Dosage: 2 G, TID
     Route: 042
     Dates: start: 20111111
  9. AZTREONAM LYSINE [Suspect]
     Active Substance: AZTREONAM LYSINE
     Indication: PSEUDOMONAS INFECTION
     Dosage: 75 MG, TID, EVERY OTHER MONTH
     Route: 055
     Dates: start: 20160914
  10. XOPENEX HFA [Concomitant]
     Active Substance: LEVALBUTEROL TARTRATE
     Dosage: 2 PUFFS THREE TIMES DAILY
     Route: 055
     Dates: start: 20170301
  11. XOPENEX HFA [Concomitant]
     Active Substance: LEVALBUTEROL TARTRATE
     Dosage: 1.25 MG NEBULIZED TWICE DAILY, INCREASED TO 3 TIMES DAILY WHEN ILL
     Route: 055
     Dates: start: 20151111
  12. PERCOCET                           /00446701/ [Concomitant]
     Active Substance: ACETAMINOPHEN\OXYCODONE HYDROCHLORIDE\OXYCODONE TEREPHTHALATE
     Indication: PAIN
     Dosage: 7.5/325 MG, 2 TABS EVERY 4 HOURS AS NEEDED
     Dates: start: 20090917
  13. CIPRO [Concomitant]
     Active Substance: CIPROFLOXACIN HYDROCHLORIDE
     Dosage: 750 MG, BID, FOR 21 DAYS
     Dates: start: 20170301
  14. COLISTIN [Concomitant]
     Active Substance: COLISTIN
     Dosage: 150 MG, BID, EVERY OTHER MONTH
     Dates: start: 201611
  15. AZITHROMYCIN ANHYDROUS. [Concomitant]
     Active Substance: AZITHROMYCIN ANHYDROUS
     Dosage: 500 MG, Q3WK (M-W-F)
     Dates: start: 20170301
  16. CHOICEFUL [Concomitant]
     Dosage: 1 DF, QD
     Dates: start: 20170621
  17. PULMOZYME [Concomitant]
     Active Substance: DORNASE ALFA
     Dosage: 2.5 MG, QD
     Route: 055
     Dates: start: 20150909
  18. AZTREONAM LYSINE [Suspect]
     Active Substance: AZTREONAM LYSINE
     Indication: CYSTIC FIBROSIS LUNG
     Dosage: 75 MG, TID, EVERY OTHER MONTH
     Route: 055
     Dates: start: 20130320
  19. SYMBICORT [Concomitant]
     Active Substance: BUDESONIDE\FORMOTEROL FUMARATE DIHYDRATE
     Dosage: 160/4.5 1 PUFF TWICE DAILY
     Route: 055
     Dates: start: 20170301
  20. ZYVOX [Concomitant]
     Active Substance: LINEZOLID
     Dosage: 600 MG, BID, FOR 21 DAYS
     Dates: start: 20170301
  21. ZYVOX [Concomitant]
     Active Substance: LINEZOLID
     Dosage: 600 MG, BID
     Route: 048
     Dates: start: 20151111

REACTIONS (4)
  - Haemoptysis [Unknown]
  - Infective pulmonary exacerbation of cystic fibrosis [Unknown]
  - Infective exacerbation of bronchiectasis [Unknown]
  - Dehydration [Unknown]
